FAERS Safety Report 4896794-1 (Version None)
Quarter: 2005Q4

REPORT INFORMATION
  Report Type: 
  Country: None (occurrence: None)
  Receive Date: 20051223
  Receipt Date: 20050926
  Transmission Date: 20060501
  Serious: Yes (Life-Threatening, Hospitalization)
  Sender: FDA-Public Use
  Company Number: 215417

PATIENT
  Age: 51 Year
  Sex: Female
  Weight: 50.8 kg

DRUGS (5)
  1. AVASTIN [Suspect]
     Indication: LUNG ADENOCARCINOMA
     Dosage: 15 MG/KG, INTRAVENOUS
     Route: 042
     Dates: start: 20050608
  2. CARBOPLATIN [Suspect]
     Indication: LUNG ADENOCARCINOMA
     Dosage: INTRAVENOUS
     Route: 042
     Dates: start: 20050608
  3. TAXOL [Suspect]
     Indication: LUNG ADENOCARCINOMA
     Dosage: 200 MG/M2, INTRAVENOUS
     Route: 042
     Dates: start: 20050608
  4. ZOFRAN [Concomitant]
  5. PHENERGAN [Concomitant]

REACTIONS (1)
  - CEREBRAL ISCHAEMIA [None]
